FAERS Safety Report 8538210-4 (Version None)
Quarter: 2012Q3

REPORT INFORMATION
  Report Type: 
  Country: None (occurrence: None)
  Receive Date: 20120726
  Receipt Date: 20120718
  Transmission Date: 20120928
  Serious: Yes (Hospitalization)
  Sender: FDA-Public Use
  Company Number: US-BIOGENIDEC-2012BI020183

PATIENT
  Age: 61 Year
  Sex: Female

DRUGS (1)
  1. TYSABRI [Suspect]
     Indication: MULTIPLE SCLEROSIS
     Route: 042
     Dates: start: 20110331, end: 20120503

REACTIONS (4)
  - DECUBITUS ULCER [None]
  - URINARY TRACT INFECTION [None]
  - URINARY BLADDER ATROPHY [None]
  - FUNGAL INFECTION [None]
